FAERS Safety Report 12589664 (Version 2)
Quarter: 2016Q3

REPORT INFORMATION
  Report Type: Spontaneous
  Country: US (occurrence: US)
  Receive Date: 20160725
  Receipt Date: 20160916
  Transmission Date: 20161109
  Serious: Yes (Other)
  Sender: FDA-Public Use
  Company Number: ALCN2016US005119

PATIENT
  Age: 63 Year
  Sex: Female
  Weight: 91.16 kg

DRUGS (4)
  1. INSULIN [Concomitant]
     Active Substance: INSULIN NOS
     Indication: DIABETES MELLITUS
  2. NEO AND POLY B SULFATES + HYDROCORTISONE [Suspect]
     Active Substance: BACITRACIN\NEOMYCIN\POLYMYXIN B
     Indication: EAR PAIN
  3. METFORMIN [Concomitant]
     Active Substance: METFORMIN HYDROCHLORIDE
     Indication: DIABETES MELLITUS
     Dosage: UNK
     Route: 048
     Dates: start: 20160212
  4. NEO AND POLY B SULFATES + HYDROCORTISONE [Suspect]
     Active Substance: BACITRACIN\NEOMYCIN\POLYMYXIN B
     Indication: EAR INFECTION
     Dosage: 3 GTT, TID
     Route: 001
     Dates: start: 20160212, end: 20160426

REACTIONS (21)
  - Abdominal pain upper [Recovering/Resolving]
  - Gastric disorder [Not Recovered/Not Resolved]
  - Feeding disorder [Unknown]
  - Ear pain [Unknown]
  - Dysgeusia [Recovered/Resolved]
  - Oropharyngeal pain [Recovered/Resolved]
  - Ototoxicity [Unknown]
  - Gait disturbance [Recovered/Resolved]
  - Abdominal discomfort [Recovering/Resolving]
  - Asthenia [Recovered/Resolved]
  - Ear discomfort [Recovered/Resolved]
  - Malaise [Unknown]
  - Gastritis [Recovering/Resolving]
  - Impaired gastric emptying [Recovering/Resolving]
  - Weight decreased [Recovering/Resolving]
  - Throat irritation [Recovered/Resolved]
  - Bezoar [Recovering/Resolving]
  - Deafness unilateral [Unknown]
  - Vulvovaginal mycotic infection [Recovered/Resolved]
  - Intentional product use issue [Recovered/Resolved]
  - Incorrect drug administration duration [Recovered/Resolved]

NARRATIVE: CASE EVENT DATE: 201602
